FAERS Safety Report 14564350 (Version 5)
Quarter: 2019Q2

REPORT INFORMATION
  Report Type: Spontaneous
  Country: US (occurrence: US)
  Receive Date: 20180222
  Receipt Date: 20190417
  Transmission Date: 20190711
  Serious: No
  Sender: FDA-Public Use
  Company Number: US-ACTELION-A-NJ2017-158767

PATIENT
  Age: 71 Year
  Sex: Female

DRUGS (2)
  1. SILDENAFIL. [Concomitant]
     Active Substance: SILDENAFIL
     Dosage: 40 MG, BID
     Dates: start: 20180111
  2. TRACLEER [Suspect]
     Active Substance: BOSENTAN
     Indication: PULMONARY ARTERIAL HYPERTENSION
     Dosage: 125 MG, BID
     Route: 048
     Dates: start: 20120713

REACTIONS (7)
  - Memory impairment [Recovered/Resolved]
  - Dyspnoea exertional [Unknown]
  - Chest pain [Unknown]
  - Fatigue [Unknown]
  - Peripheral swelling [Unknown]
  - Product dose omission [Recovered/Resolved]
  - Dizziness [Unknown]

NARRATIVE: CASE EVENT DATE: 20180611
